FAERS Safety Report 6523982-0 (Version None)
Quarter: 2009Q4

REPORT INFORMATION
  Report Type: 
  Country: None (occurrence: None)
  Receive Date: 20091231
  Receipt Date: 20091221
  Transmission Date: 20100525
  Serious: Yes (Hospitalization, Disabling)
  Sender: FDA-Public Use
  Company Number: US-CELGENEUS-163-21880-09091210

PATIENT
  Sex: Male

DRUGS (2)
  1. REVLIMID [Suspect]
     Indication: MULTIPLE MYELOMA
     Route: 048
     Dates: start: 20090801, end: 20090924
  2. REVLIMID [Suspect]
     Route: 048
     Dates: start: 20091015

REACTIONS (5)
  - ABASIA [None]
  - DYSPNOEA [None]
  - LOCAL SWELLING [None]
  - PARAESTHESIA [None]
  - TESTICULAR SWELLING [None]
